FAERS Safety Report 8472630-1 (Version None)
Quarter: 2012Q2

REPORT INFORMATION
  Report Type: 
  Country: None (occurrence: None)
  Receive Date: 20120627
  Receipt Date: 20120417
  Transmission Date: 20120825
  Serious: No
  Sender: FDA-Public Use
  Company Number: US-AMGEN-USASP2012025410

PATIENT

DRUGS (1)
  1. PROCRIT [Suspect]
     Indication: PRODUCT USED FOR UNKNOWN INDICATION
     Dosage: UNK

REACTIONS (5)
  - MEMORY IMPAIRMENT [None]
  - DECREASED APPETITE [None]
  - ASTHENIA [None]
  - FEELING ABNORMAL [None]
  - DIZZINESS [None]
